FAERS Safety Report 11260160 (Version 8)
Quarter: 2016Q3

REPORT INFORMATION
  Report Type: Report from Study
  Country: RU (occurrence: RU)
  Receive Date: 20150710
  Receipt Date: 20160823
  Transmission Date: 20161109
  Serious: Yes (Hospitalization, Other)
  Sender: FDA-Public Use
  Company Number: RU-B.I. PHARMACEUTICALS,INC./RIDGEFIELD-2015-BI-03291BI

PATIENT
  Age: 75 Year
  Sex: Female
  Weight: 74 kg

DRUGS (8)
  1. TORASEMIDI [Concomitant]
     Indication: NEPHROTIC SYNDROME
     Dosage: 5 MG
     Route: 048
     Dates: start: 2012
  2. METFORMIN [Concomitant]
     Active Substance: METFORMIN HYDROCHLORIDE
     Indication: DIABETES MELLITUS
     Dosage: 500 MG
     Route: 048
     Dates: start: 201303
  3. LINAGLIPTIN [Suspect]
     Active Substance: LINAGLIPTIN
     Indication: TYPE 2 DIABETES MELLITUS
     Dosage: 5 MG
     Route: 048
     Dates: start: 20141029, end: 20150622
  4. ATACAND [Concomitant]
     Active Substance: CANDESARTAN CILEXETIL
     Indication: HYPERTENSION
     Dosage: 32 MG
     Route: 048
     Dates: start: 201405
  5. ACETHYL SALICILIET ACIDI [Concomitant]
     Indication: NEPHROTIC SYNDROME
     Dosage: 75 MG
     Route: 048
     Dates: start: 2012
  6. AMLODIPIN [Concomitant]
     Active Substance: AMLODIPINE BESYLATE
     Indication: HYPERTENSION
     Dosage: 5 MG
     Route: 048
     Dates: start: 20140501
  7. ROSUVASTATIN. [Concomitant]
     Active Substance: ROSUVASTATIN
     Indication: NEPHROTIC SYNDROME
     Dosage: 10 MG
     Route: 048
     Dates: start: 2012
  8. BISOPROLOL [Concomitant]
     Active Substance: BISOPROLOL
     Indication: HYPERTENSION
     Dosage: 5 MG
     Route: 048
     Dates: start: 2012

REACTIONS (8)
  - Nephrotic syndrome [Recovered/Resolved with Sequelae]
  - Nephrotic syndrome [Recovered/Resolved]
  - Pulmonary embolism [Recovered/Resolved]
  - Generalised oedema [Recovered/Resolved with Sequelae]
  - Hypoglycaemia [Recovered/Resolved]
  - Acute kidney injury [Recovered/Resolved]
  - Pneumonia [Recovered/Resolved]
  - Nephrotic syndrome [Recovered/Resolved with Sequelae]

NARRATIVE: CASE EVENT DATE: 20141119
